FAERS Safety Report 12462747 (Version 1)
Quarter: 2016Q2

REPORT INFORMATION
  Report Type: Spontaneous
  Country: US (occurrence: US)
  Receive Date: 20160614
  Receipt Date: 20160614
  Transmission Date: 20160815
  Serious: No
  Sender: FDA-Public Use
  Company Number: US-ZYDUS-010567

PATIENT
  Age: 61 Year
  Sex: Female

DRUGS (2)
  1. VITAMINS NOS [Concomitant]
     Active Substance: VITAMINS
  2. METFORMIN [Suspect]
     Active Substance: METFORMIN HYDROCHLORIDE
     Indication: DIABETES MELLITUS
     Route: 048
     Dates: start: 20160314

REACTIONS (6)
  - Ocular hyperaemia [Not Recovered/Not Resolved]
  - Photophobia [Not Recovered/Not Resolved]
  - Productive cough [Not Recovered/Not Resolved]
  - Haemoptysis [Not Recovered/Not Resolved]
  - Pyrexia [Not Recovered/Not Resolved]
  - Eye irritation [Not Recovered/Not Resolved]

NARRATIVE: CASE EVENT DATE: 201603
